FAERS Safety Report 23784829 (Version 1)
Quarter: 2024Q2

REPORT INFORMATION
  Report Type: Spontaneous
  Country: DE (occurrence: DE)
  Receive Date: 20240425
  Receipt Date: 20240425
  Transmission Date: 20240716
  Serious: Yes (Other)
  Sender: FDA-Public Use
  Company Number: DE-PFIZER INC-202400092709

PATIENT
  Sex: Female

DRUGS (2)
  1. IBRANCE [Suspect]
     Active Substance: PALBOCICLIB
     Dosage: 3 WEEKS ADMINISTRATION + 1 WEEK PAUSE
  2. FULVESTRANT [Concomitant]
     Active Substance: FULVESTRANT
     Dosage: INJECTION EVERY 4 WEEKS
     Dates: start: 202302

REACTIONS (1)
  - Peripheral embolism [Unknown]
